FAERS Safety Report 22098438 (Version 3)
Quarter: 2023Q1

REPORT INFORMATION
  Report Type: Report from Study
  Country: CN (occurrence: CN)
  Receive Date: 20230315
  Receipt Date: 20230331
  Transmission Date: 20230418
  Serious: Yes (Death)
  Sender: FDA-Public Use
  Company Number: CN-BoehringerIngelheim-2023-BI-224370

PATIENT
  Age: 68 Year
  Sex: Male
  Weight: 63 kg

DRUGS (4)
  1. TENECTEPLASE [Suspect]
     Active Substance: TENECTEPLASE
     Indication: Ischaemic stroke
     Dosage: POWDER INJECTION
     Route: 042
     Dates: start: 20230311, end: 20230311
  2. URAPIDIL HYDROCHLORIDE [Concomitant]
     Active Substance: URAPIDIL HYDROCHLORIDE
     Indication: Hypertension
     Route: 042
     Dates: start: 20230311, end: 20230311
  3. BUTYLPHTHALIDE [Concomitant]
     Active Substance: BUTYLPHTHALIDE
     Indication: Cerebral infarction
     Route: 042
     Dates: start: 20230311, end: 20230311
  4. EDARAVONE [Concomitant]
     Active Substance: EDARAVONE
     Indication: Cerebral infarction
     Route: 042
     Dates: start: 20230311, end: 20230311

REACTIONS (1)
  - Cerebral infarction [Fatal]

NARRATIVE: CASE EVENT DATE: 20230311
